FAERS Safety Report 7326776-1 (Version None)
Quarter: 2011Q1

REPORT INFORMATION
  Report Type: 
  Country: None (occurrence: None)
  Receive Date: 20110216
  Receipt Date: 20110201
  Transmission Date: 20110831
  Serious: No
  Sender: FDA-Public Use
  Company Number: B0699433A

PATIENT
  Age: 62 Year
  Sex: Female

DRUGS (9)
  1. ATORVASTATIN CALCIUM [Concomitant]
  2. ASPIRIN [Concomitant]
  3. ONDANSETRON HYDROCHLORIDE (FORMULATION UNKNOWN) (GENERIC) (ONDANSETRON [Suspect]
  4. CITALOPRAM [Concomitant]
  5. HEPARIN [Concomitant]
  6. OXIDISED CELLULOSE [Concomitant]
  7. SUXAMETHONIUM (GENERIC) (SUCCINYLCHOLINE CHLORIDE) [Suspect]
  8. NORTRIPTYLINE (NORTRIPTYLINE) [Suspect]
     Dosage: 25 MG
  9. TOPIRAMATE [Concomitant]

REACTIONS (7)
  - VENTRICULAR TACHYCARDIA [None]
  - ELECTROCARDIOGRAM QT PROLONGED [None]
  - BLOOD MAGNESIUM INCREASED [None]
  - CARDIAC ARREST [None]
  - SINUS BRADYCARDIA [None]
  - INCISION SITE COMPLICATION [None]
  - SECRETION DISCHARGE [None]
